FAERS Safety Report 6393021-3 (Version None)
Quarter: 2009Q4

REPORT INFORMATION
  Report Type: 
  Country: None (occurrence: None)
  Receive Date: 20091008
  Receipt Date: 20070418
  Transmission Date: 20100525
  Serious: Yes (Hospitalization, Other)
  Sender: FDA-Public Use
  Company Number: US-ASTRAZENECA-2005UW17274

PATIENT
  Age: 23219 Day
  Sex: Female
  Weight: 95.3 kg

DRUGS (22)
  1. SEROQUEL [Suspect]
     Indication: DEPRESSION
     Route: 048
     Dates: start: 20030508, end: 20040410
  2. SEROQUEL [Suspect]
     Indication: ANXIETY
     Route: 048
     Dates: start: 20030508, end: 20040410
  3. SEROQUEL [Suspect]
     Indication: ILLUSION
     Route: 048
     Dates: start: 20030508, end: 20040410
  4. SEROQUEL [Suspect]
     Indication: FORMICATION
     Route: 048
     Dates: start: 20030508, end: 20040410
  5. SEROQUEL [Suspect]
     Dosage: 100 MG -800 MG
     Route: 048
     Dates: start: 20031021
  6. SEROQUEL [Suspect]
     Dosage: 100 MG -800 MG
     Route: 048
     Dates: start: 20031021
  7. SEROQUEL [Suspect]
     Dosage: 100 MG -800 MG
     Route: 048
     Dates: start: 20031021
  8. SEROQUEL [Suspect]
     Dosage: 100 MG -800 MG
     Route: 048
     Dates: start: 20031021
  9. DIOVAN [Concomitant]
     Indication: HYPERTENSION
     Dates: start: 20031021
  10. LANTUS [Concomitant]
     Dosage: 12 UNITS - 120 UNITS
     Dates: start: 20031022
  11. TRIAMTERENE AND HYDROCHLOROTHIAZIDE [Concomitant]
     Dosage: 37.5/25 MG PER DAY
     Dates: start: 20060124
  12. REMERON [Concomitant]
     Dates: start: 20060124
  13. CELEXA [Concomitant]
     Indication: DEPRESSION
     Dates: start: 20070101
  14. CELEXA [Concomitant]
     Indication: ANXIETY
     Dates: start: 20070101
  15. LEXAPRO [Concomitant]
     Indication: DEPRESSION
     Dates: start: 20031021
  16. LEXAPRO [Concomitant]
     Indication: ANXIETY
     Dates: start: 20031021
  17. NORVASC [Concomitant]
     Indication: HYPERTENSION
     Dates: start: 20031021
  18. NORVASC [Concomitant]
     Indication: ANGINA PECTORIS
     Dates: start: 20031021
  19. INSULIN HUMALOG/LISPRO INSULIN [Concomitant]
     Dosage: 6 UNITS - 36 UNITS
     Dates: start: 20031026
  20. LOSARTAN [Concomitant]
     Dosage: 50 QD, 500 MG DAILY
     Dates: start: 20031022
  21. COREG [Concomitant]
     Dosage: 6.25 MG - 12.5 MG
     Dates: start: 20020419
  22. LANOXIN [Concomitant]
     Dates: start: 20060228

REACTIONS (8)
  - CARDIAC DISORDER [None]
  - CONGESTIVE CARDIOMYOPATHY [None]
  - DIABETIC COMA [None]
  - DIABETIC KETOACIDOSIS [None]
  - HYPERTENSIVE HEART DISEASE [None]
  - PANCREATITIS [None]
  - TYPE 1 DIABETES MELLITUS [None]
  - TYPE 2 DIABETES MELLITUS [None]
